FAERS Safety Report 5725706-3 (Version None)
Quarter: 2008Q2

REPORT INFORMATION
  Report Type: 
  Country: None (occurrence: None)
  Receive Date: 20080501
  Receipt Date: 20080422
  Transmission Date: 20081010
  Serious: Yes (Other)
  Sender: FDA-Public Use
  Company Number: US-ABBOTT-08P-163-0436431-00

PATIENT
  Sex: Male
  Weight: 57.204 kg

DRUGS (4)
  1. HUMIRA [Suspect]
     Indication: CROHN'S DISEASE
     Dates: start: 20071220
  2. HUMIRA [Suspect]
     Dates: start: 20080103, end: 20080109
  3. MESALAMINE [Concomitant]
     Indication: DRUG USE FOR UNKNOWN INDICATION
  4. AZATHIOPRINE [Concomitant]
     Indication: DRUG USE FOR UNKNOWN INDICATION

REACTIONS (10)
  - ABDOMINAL ADHESIONS [None]
  - ABDOMINAL PAIN [None]
  - GRANULOMA [None]
  - INFLAMMATION [None]
  - INTESTINAL PERFORATION [None]
  - NONSPECIFIC REACTION [None]
  - PERITONITIS [None]
  - POST PROCEDURAL DRAINAGE [None]
  - ROSAI-DORFMAN SYNDROME [None]
  - ULCER [None]
